FAERS Safety Report 5662511-0 (Version None)
Quarter: 2008Q1

REPORT INFORMATION
  Report Type: 
  Country: None (occurrence: None)
  Receive Date: 20080310
  Receipt Date: 20080310
  Transmission Date: 20080703
  Serious: Yes (Other)
  Sender: FDA-Public Use
  Company Number: None

PATIENT
  Sex: Male
  Weight: 67.7 kg

DRUGS (1)
  1. DEPAKOTE [Suspect]
     Indication: GRAND MAL CONVULSION
     Dosage: 2700 MG DAILY PO
     Route: 048

REACTIONS (2)
  - ASTHMA [None]
  - THROMBOCYTOPENIA [None]
